FAERS Safety Report 17382373 (Version 2)
Quarter: 2020Q1

REPORT INFORMATION
  Report Type: Spontaneous
  Country: US (occurrence: US)
  Receive Date: 20200206
  Receipt Date: 20200221
  Transmission Date: 20200409
  Serious: Yes (Hospitalization, Other)
  Sender: FDA-Public Use
  Company Number: US-ROCHE-2537500

PATIENT
  Age: 4 Year
  Sex: Female
  Weight: 17.2 kg

DRUGS (2)
  1. ALTEPLASE. [Suspect]
     Active Substance: ALTEPLASE
     Indication: EMPYEMA
     Route: 034
     Dates: start: 202001
  2. ALTEPLASE. [Suspect]
     Active Substance: ALTEPLASE
     Route: 034
     Dates: start: 20200127

REACTIONS (8)
  - Pyrexia [Unknown]
  - Off label use [Unknown]
  - General physical health deterioration [Not Recovered/Not Resolved]
  - Pain [Unknown]
  - Respiratory rate increased [Unknown]
  - Medication error [Unknown]
  - Thoracic cavity drainage [Not Recovered/Not Resolved]
  - Intentional product use issue [Unknown]

NARRATIVE: CASE EVENT DATE: 202001
